FAERS Safety Report 9278583 (Version 2)
Quarter: 2013Q2

REPORT INFORMATION
  Report Type: Report from Study
  Country: AR (occurrence: AR)
  Receive Date: 20130508
  Receipt Date: 20130606
  Transmission Date: 20140414
  Serious: Yes (Other)
  Sender: FDA-Public Use
  Company Number: PHHY2013AR045580

PATIENT
  Sex: Female

DRUGS (2)
  1. DIOVAN D [Suspect]
     Indication: HYPERTENSION
     Dosage: 1 DF (160/12.5MG) DAILY
     Route: 048
  2. DIOVAN D [Suspect]
     Dosage: 2 DF (160/12.5MG) DAILY

REACTIONS (4)
  - Fibula fracture [Not Recovered/Not Resolved]
  - Fall [Unknown]
  - Stitch abscess [Not Recovered/Not Resolved]
  - Hypertension [Recovered/Resolved]
